FAERS Safety Report 8287608-0 (Version None)
Quarter: 2012Q2

REPORT INFORMATION
  Report Type: 
  Country: None (occurrence: None)
  Receive Date: 20120416
  Receipt Date: 20120410
  Transmission Date: 20120825
  Serious: Yes (Other)
  Sender: FDA-Public Use
  Company Number: PHFR2011GB06267

PATIENT
  Sex: Male

DRUGS (2)
  1. CLOZARIL [Suspect]
     Indication: SCHIZOPHRENIA
     Dosage: 400 MG, DAILY
     Route: 048
     Dates: start: 20021101
  2. CLOZARIL [Suspect]
     Dosage: 400 MG, DAILY
     Route: 048

REACTIONS (6)
  - HAEMOGLOBIN INCREASED [None]
  - WHITE BLOOD CELL COUNT DECREASED [None]
  - NASOPHARYNGITIS [None]
  - NEUTROPHIL COUNT DECREASED [None]
  - PLATELET COUNT DECREASED [None]
  - EOSINOPHIL COUNT DECREASED [None]
